FAERS Safety Report 5659771-9 (Version None)
Quarter: 2008Q1

REPORT INFORMATION
  Report Type: 
  Country: None (occurrence: None)
  Receive Date: 20080311
  Receipt Date: 20070711
  Transmission Date: 20080703
  Serious: No
  Sender: FDA-Public Use
  Company Number: US-BAYER-200712206BCC

PATIENT
  Age: 49 Year
  Sex: Male
  Weight: 73 kg

DRUGS (2)
  1. ALEVE [Suspect]
     Indication: BACK PAIN
     Route: 048
     Dates: start: 20060101
  2. LEVSIN [Concomitant]

REACTIONS (1)
  - OROPHARYNGEAL BLISTERING [None]
